FAERS Safety Report 7414529-5 (Version None)
Quarter: 2011Q2

REPORT INFORMATION
  Report Type: 
  Country: None (occurrence: None)
  Receive Date: 20110414
  Receipt Date: 20110405
  Transmission Date: 20111010
  Serious: Yes (Hospitalization)
  Sender: FDA-Public Use
  Company Number: NO-NOVOPROD-326121

PATIENT
  Sex: Male
  Weight: 120 kg

DRUGS (9)
  1. METFFORMIN HYDROCHLORIDE [Concomitant]
     Dosage: 2 MG, QD
     Route: 065
  2. INSULATARD [Suspect]
     Indication: PRODUCT USED FOR UNKNOWN INDICATION
     Dosage: 66 IU(36 IU MORNING, 30 IU EVENING), QD
     Route: 065
  3. NOVORAPID [Suspect]
     Dosage: 280 IU, QD
     Route: 065
     Dates: start: 20110402
  4. EXENATIDE [Concomitant]
     Dosage: 5 MG, UNK
     Route: 065
  5. EXENATIDE [Concomitant]
     Dosage: 10 UNKNOWN, QD
     Route: 065
  6. VILDAGLIPTIN [Concomitant]
     Dosage: 100 MG, QD
     Route: 065
  7. INSULATARD [Suspect]
     Dosage: 280 IU, QD
     Route: 065
     Dates: start: 20110402
  8. NOVORAPID [Suspect]
     Indication: PRODUCT USED FOR UNKNOWN INDICATION
     Dosage: UNK
     Route: 065
  9. SIMVASTATIN [Concomitant]
     Dosage: 40 MG, QD
     Route: 065

REACTIONS (4)
  - MUSCULOSKELETAL DISCOMFORT [None]
  - DRUG INEFFECTIVE [None]
  - DIABETES MELLITUS INADEQUATE CONTROL [None]
  - CHEST DISCOMFORT [None]
